FAERS Safety Report 7464250-2 (Version None)
Quarter: 2011Q2

REPORT INFORMATION
  Report Type: 
  Country: None (occurrence: None)
  Receive Date: 20110506
  Receipt Date: 20090211
  Transmission Date: 20111010
  Serious: Yes (Death)
  Sender: FDA-Public Use
  Company Number: US-GILEAD-2009-0020275

PATIENT
  Sex: Male
  Weight: 65.376 kg

DRUGS (10)
  1. LETAIRIS [Suspect]
     Indication: PULMONARY ARTERIAL HYPERTENSION
     Dates: start: 20070801, end: 20081101
  2. PREDNISONE [Concomitant]
  3. DIGOXIN [Concomitant]
  4. BUMEX [Concomitant]
  5. SYNTHROID [Concomitant]
  6. REVATIO [Concomitant]
  7. MIDODRINE HYDROCHLORIDE [Concomitant]
  8. REMODULIN [Concomitant]
  9. PRAVASTATIN [Concomitant]
  10. PREVACID [Concomitant]

REACTIONS (1)
  - ANAEMIA [None]
